FAERS Safety Report 7214835-3 (Version None)
Quarter: 2011Q1

REPORT INFORMATION
  Report Type: 
  Country: None (occurrence: None)
  Receive Date: 20110107
  Receipt Date: 20100323
  Transmission Date: 20110831
  Serious: No
  Sender: FDA-Public Use
  Company Number: A0851609A

PATIENT
  Age: 52 Year
  Sex: Female

DRUGS (4)
  1. LOVAZA [Suspect]
     Dosage: 2CAP PER DAY
     Route: 048
     Dates: start: 20100120, end: 20100323
  2. GLUCOSAMINE [Concomitant]
  3. MULTIVITAMIN [Concomitant]
  4. TRILIPIX [Concomitant]

REACTIONS (1)
  - PAIN IN EXTREMITY [None]
